FAERS Safety Report 16580508 (Version 2)
Quarter: 2019Q3

REPORT INFORMATION
  Report Type: Report from Study
  Country: CO (occurrence: CO)
  Receive Date: 20190716
  Receipt Date: 20190722
  Transmission Date: 20191004
  Serious: Yes (Death, Hospitalization)
  Sender: FDA-Public Use
  Company Number: PHHY2019CO159418

PATIENT
  Age: 24 Year
  Sex: Female
  Weight: 69 kg

DRUGS (3)
  1. GLIVEC [Suspect]
     Active Substance: IMATINIB MESYLATE
     Indication: PRODUCT USED FOR UNKNOWN INDICATION
     Route: 065
  2. DASATINIB. [Concomitant]
     Active Substance: DASATINIB
     Indication: PRODUCT USED FOR UNKNOWN INDICATION
     Route: 065
  3. TASIGNA [Suspect]
     Active Substance: NILOTINIB
     Indication: CHRONIC MYELOID LEUKAEMIA
     Dosage: 400 MG, (EVERY 12 HOUR)
     Route: 048
     Dates: start: 20190606

REACTIONS (6)
  - Drug resistance [Unknown]
  - Cytogenetic abnormality [Fatal]
  - Pain [Unknown]
  - Drug ineffective [Unknown]
  - Klebsiella infection [Unknown]
  - Somnolence [Unknown]

NARRATIVE: CASE EVENT DATE: 20190621
